FAERS Safety Report 13776116 (Version 1)
Quarter: 2017Q3

REPORT INFORMATION
  Report Type: Spontaneous
  Country: FR (occurrence: FR)
  Receive Date: 20170720
  Receipt Date: 20170720
  Transmission Date: 20171127
  Serious: Yes (Other)
  Sender: FDA-Public Use
  Company Number: FR-BAYER-2017-134066

PATIENT
  Age: 33 Year
  Sex: Female

DRUGS (1)
  1. MIRENA [Suspect]
     Active Substance: LEVONORGESTREL
     Indication: CONTRACEPTION
     Dosage: 20 MCG/24HR, CONT
     Route: 015
     Dates: start: 20150401, end: 20170110

REACTIONS (8)
  - Amenorrhoea [Recovered/Resolved]
  - Breast pain [Recovered/Resolved]
  - Libido decreased [Recovered/Resolved]
  - Headache [Recovered/Resolved]
  - Device difficult to use [Recovered/Resolved]
  - Anxiety [Recovered/Resolved]
  - Pelvic pain [Recovered/Resolved]
  - Alopecia [Recovered/Resolved]

NARRATIVE: CASE EVENT DATE: 20151001
